FAERS Safety Report 4318236-7 (Version None)
Quarter: 2004Q1

REPORT INFORMATION
  Report Type: 
  Country: None (occurrence: None)
  Receive Date: 20040315
  Receipt Date: 20040304
  Transmission Date: 20041129
  Serious: Yes (Disabling)
  Sender: FDA-Public Use
  Company Number: GBWYE568109FEB04

PATIENT
  Age: 40 Year
  Sex: Female

DRUGS (6)
  1. EFFEXOR [Suspect]
     Dosage: SEE IMAGE
     Dates: start: 20040109, end: 20040112
  2. EFFEXOR [Suspect]
     Dosage: SEE IMAGE
     Dates: start: 20040113, end: 20040113
  3. EFFEXOR [Suspect]
     Dosage: SEE IMAGE
     Dates: start: 20040114, end: 20040119
  4. EFFEXOR [Suspect]
     Dosage: SEE IMAGE
     Dates: start: 20040131
  5. EFFEXOR XR [Suspect]
     Dosage: 150 MG 1X PER 1 DAY
     Dates: start: 20040120, end: 20040130
  6. CIPRAMIL (CITALOPRAM HYDROBROMIDE) [Concomitant]

REACTIONS (16)
  - ABNORMAL DREAMS [None]
  - APHONIA [None]
  - HEADACHE [None]
  - HYPERHIDROSIS [None]
  - HYPERREFLEXIA [None]
  - HYPOMANIA [None]
  - MUSCLE RIGIDITY [None]
  - MUSCLE SPASMS [None]
  - MUSCULAR WEAKNESS [None]
  - MUSCULOSKELETAL STIFFNESS [None]
  - NAUSEA [None]
  - PARAESTHESIA [None]
  - RESTLESSNESS [None]
  - SENSATION OF HEAVINESS [None]
  - TREMOR [None]
  - VOMITING [None]
